FAERS Safety Report 6703708-8 (Version None)
Quarter: 2010Q2

REPORT INFORMATION
  Report Type: 
  Country: None (occurrence: None)
  Receive Date: 20100430
  Receipt Date: 20100325
  Transmission Date: 20101027
  Serious: No
  Sender: FDA-Public Use
  Company Number: A0852008A

PATIENT
  Age: 80 Year
  Sex: Male

DRUGS (7)
  1. FLOVENT [Suspect]
     Indication: ASTHMA
     Dosage: 1PUFF TWICE PER DAY
     Route: 055
     Dates: start: 20100310, end: 20100324
  2. ISOSORBIDE [Concomitant]
  3. METOPROLOL [Concomitant]
  4. GLYBURIDE [Concomitant]
  5. LOVAZA [Concomitant]
  6. ASPIRIN [Concomitant]
  7. MULTI-VITAMIN [Concomitant]

REACTIONS (4)
  - ERYTHEMA [None]
  - PAIN [None]
  - PRURITUS [None]
  - RASH [None]
